FAERS Safety Report 24240873 (Version 1)
Quarter: 2024Q3

REPORT INFORMATION
  Report Type: Spontaneous
  Country: CN (occurrence: CN)
  Receive Date: 20240823
  Receipt Date: 20240823
  Transmission Date: 20241017
  Serious: Yes (Life-Threatening, Hospitalization)
  Sender: NOVO NORDISK
  Company Number: None

PATIENT
  Age: 32 Year
  Sex: Female
  Weight: 55 kg

DRUGS (1)
  1. OZEMPIC [Suspect]
     Active Substance: SEMAGLUTIDE
     Indication: Obesity
     Dosage: 0.25 MG, QD
     Route: 058
     Dates: start: 20240708

REACTIONS (6)
  - Nausea [Recovering/Resolving]
  - Vomiting [Recovering/Resolving]
  - Abdominal pain [Recovering/Resolving]
  - Decreased appetite [Unknown]
  - Asthenia [Unknown]
  - Product use in unapproved indication [Unknown]

NARRATIVE: CASE EVENT DATE: 20240708
